FAERS Safety Report 10946424 (Version 1)
Quarter: 2015Q1

REPORT INFORMATION
  Report Type: Spontaneous
  Country: US (occurrence: US)
  Receive Date: 20150323
  Receipt Date: 20150323
  Transmission Date: 20150721
  Serious: No
  Sender: FDA-Public Use
  Company Number: US-GLAXOSMITHKLINE-US2015GSK022203

PATIENT
  Age: 57 Year
  Sex: Female
  Weight: 69.39 kg

DRUGS (1)
  1. WELLBUTRIN XL [Suspect]
     Active Substance: BUPROPION HYDROCHLORIDE
     Indication: BIPOLAR DISORDER
     Dosage: 300 MG IN A.M., 150 MG IN P.M., DAILY
     Route: 048

REACTIONS (3)
  - Constipation [Not Recovered/Not Resolved]
  - Product use issue [Unknown]
  - Insomnia [Recovered/Resolved]

NARRATIVE: CASE EVENT DATE: 2014
